FAERS Safety Report 8935583 (Version 1)
Quarter: 2012Q4

REPORT INFORMATION
  Report Type: 
  Country: US (occurrence: US)
  Receive Date: 20121130
  Receipt Date: 20121130
  Transmission Date: 20130627
  Serious: Yes (Other)
  Sender: FDA-Public Use
  Company Number: PHEH2012US023330

PATIENT
  Age: 61 Year
  Sex: Female
  Weight: 42 kg

DRUGS (13)
  1. ZOMETA [Suspect]
     Indication: METASTASES TO BONE
     Dosage: UNK UKN, UNK
     Dates: start: 200906, end: 20120424
  2. DENOSUMAB [Suspect]
     Indication: METASTASES TO BONE
     Dosage: 120 mg, UNK
     Route: 058
     Dates: start: 20120529, end: 20120828
  3. HALAVEN [Concomitant]
     Dosage: 1.8 mg, UNK
     Dates: start: 20120911
  4. HALAVEN [Concomitant]
     Dosage: 1.8 mg, UNK
     Dates: start: 20120918
  5. HYSRON [Concomitant]
  6. EDIROL [Concomitant]
  7. ASPARA [Concomitant]
  8. MAGMITT [Concomitant]
  9. EURODIN [Concomitant]
  10. PRIMPERAN [Concomitant]
  11. INTEBAN [Concomitant]
  12. LOXONIN [Concomitant]
  13. SEDES G [Concomitant]

REACTIONS (11)
  - Osteonecrosis of jaw [Unknown]
  - Purulent discharge [Not Recovered/Not Resolved]
  - Swelling [Unknown]
  - Blood chloride increased [Unknown]
  - Red blood cell count decreased [Unknown]
  - Haematocrit decreased [Unknown]
  - Blood pressure systolic increased [Unknown]
  - Blood creatinine increased [Unknown]
  - Blood lactate dehydrogenase increased [Unknown]
  - Haemoglobin decreased [Unknown]
  - Headache [Unknown]
